FAERS Safety Report 8891305 (Version 1)
Quarter: 2012Q4

REPORT INFORMATION
  Report Type: 
  Country: US (occurrence: US)
  Receive Date: 20121107
  Receipt Date: 20121107
  Transmission Date: 20130627
  Serious: Yes (Other)
  Sender: FDA-Public Use
  Company Number: US-BAYER-2012-115016

PATIENT
  Age: 65 Year
  Sex: Female
  Weight: 72.56 kg

DRUGS (5)
  1. ALEVE CAPLET/TABLET,MIDOL EXTENDED RELIEF CAPLET [Suspect]
     Dosage: 1 DF, QD
     Route: 048
     Dates: start: 20121028
  2. DIOVAN [Concomitant]
  3. PREVACID [Concomitant]
  4. SIMVASTATIN [Concomitant]
  5. WELCHOL [Concomitant]

REACTIONS (3)
  - Cystitis [Recovering/Resolving]
  - Blood urine present [Recovering/Resolving]
  - Haemorrhage urinary tract [Recovering/Resolving]
